FAERS Safety Report 15254846 (Version 1)
Quarter: 2018Q3

REPORT INFORMATION
  Report Type: Spontaneous
  Country: US (occurrence: US)
  Receive Date: 20180717
  Receipt Date: 20180717
  Transmission Date: 20181010
  Serious: Yes (Life-Threatening, Hospitalization, Other)
  Sender: FDA-Public Use
  Company Number: None

PATIENT
  Age: 33 Year
  Sex: Female
  Weight: 74.25 kg

DRUGS (9)
  1. DAYSEE [Suspect]
     Active Substance: ETHINYL ESTRADIOL\LEVONORGESTREL
     Indication: MIGRAINE
     Dosage: ?          QUANTITY:1 TABLET(S);?
     Route: 048
  2. DAYSEE [Suspect]
     Active Substance: ETHINYL ESTRADIOL\LEVONORGESTREL
     Indication: CONTRACEPTION
     Dosage: ?          QUANTITY:1 TABLET(S);?
     Route: 048
  3. IBUPROFEN. [Concomitant]
     Active Substance: IBUPROFEN
  4. PRISTIQUE ER [Concomitant]
  5. DAYSEE [Suspect]
     Active Substance: ETHINYL ESTRADIOL\LEVONORGESTREL
     Indication: MENORRHAGIA
     Dosage: ?          QUANTITY:1 TABLET(S);?
     Route: 048
  6. DAYSEE [Suspect]
     Active Substance: ETHINYL ESTRADIOL\LEVONORGESTREL
     Indication: MUSCLE SPASMS
     Dosage: ?          QUANTITY:1 TABLET(S);?
     Route: 048
  7. MULTIVITAMIN [Concomitant]
     Active Substance: VITAMINS
  8. LUNESTA [Concomitant]
     Active Substance: ESZOPICLONE
  9. BYSTOLIC [Concomitant]
     Active Substance: NEBIVOLOL HYDROCHLORIDE

REACTIONS (3)
  - Hepatic adenoma [None]
  - Pain [None]
  - Tumour rupture [None]

NARRATIVE: CASE EVENT DATE: 20180411
